FAERS Safety Report 13987787 (Version 2)
Quarter: 2018Q1

REPORT INFORMATION
  Report Type: Spontaneous
  Country: MX (occurrence: MX)
  Receive Date: 20170919
  Receipt Date: 20180312
  Transmission Date: 20180508
  Serious: Yes (Disabling)
  Sender: FDA-Public Use
  Company Number: MX-ROCHE-1990931

PATIENT
  Age: 54 Year
  Sex: Female
  Weight: 51 kg

DRUGS (3)
  1. RIVOTRIL [Suspect]
     Active Substance: CLONAZEPAM
     Indication: INSOMNIA
     Dosage: 1/2 DROP
     Route: 048
  2. BONVIVA [Suspect]
     Active Substance: IBANDRONATE SODIUM
     Dosage: CURRENT ONGOING
     Route: 048
     Dates: start: 2014
  3. BONVIVA [Suspect]
     Active Substance: IBANDRONATE SODIUM
     Indication: OSTEOPOROSIS
     Route: 048
     Dates: start: 2009

REACTIONS (12)
  - Insomnia [Recovering/Resolving]
  - Abdominal pain upper [Recovered/Resolved]
  - Fibrosis [Not Recovered/Not Resolved]
  - Tooth erosion [Not Recovered/Not Resolved]
  - Hypertension [Recovering/Resolving]
  - Pain [Recovering/Resolving]
  - Intentional product use issue [Unknown]
  - Gastrooesophageal reflux disease [Recovering/Resolving]
  - Lower limb fracture [Recovered/Resolved]
  - Wrist fracture [Recovered/Resolved]
  - Myalgia [Recovering/Resolving]
  - Off label use [Unknown]

NARRATIVE: CASE EVENT DATE: 2014
